FAERS Safety Report 11154975 (Version 1)
Quarter: 2015Q2

REPORT INFORMATION
  Report Type: Spontaneous
  Country: CA (occurrence: CA)
  Receive Date: 20150602
  Receipt Date: 20150602
  Transmission Date: 20150821
  Serious: Yes (Hospitalization, Other)
  Sender: FDA-Public Use
  Company Number: CA-ROCHE-1587183

PATIENT
  Age: 54 Year
  Sex: Male

DRUGS (7)
  1. XOLAIR [Suspect]
     Active Substance: OMALIZUMAB
     Route: 058
     Dates: start: 20121116
  2. XOLAIR [Suspect]
     Active Substance: OMALIZUMAB
     Indication: ASTHMA
     Dosage: BIW
     Route: 058
     Dates: start: 20110923
  3. VENTOLIN [Concomitant]
     Active Substance: ALBUTEROL SULFATE
  4. SYMBICORT [Concomitant]
     Active Substance: BUDESONIDE\FORMOTEROL FUMARATE DIHYDRATE
  5. SINGULAIR [Concomitant]
     Active Substance: MONTELUKAST SODIUM
  6. UNIPHYL [Suspect]
     Active Substance: THEOPHYLLINE ANHYDROUS
     Indication: PRODUCT USED FOR UNKNOWN INDICATION
     Route: 065
  7. NASONEX [Concomitant]
     Active Substance: MOMETASONE FUROATE

REACTIONS (19)
  - Asthma [Unknown]
  - Hyposmia [Unknown]
  - Heart rate increased [Unknown]
  - Nasal polyps [Recovering/Resolving]
  - Eosinophil count increased [Unknown]
  - Hypertension [Unknown]
  - Middle insomnia [Unknown]
  - Dyspepsia [Unknown]
  - Blood immunoglobulin E increased [Unknown]
  - Respiratory tract infection [Unknown]
  - Nasal obstruction [Unknown]
  - Upper-airway cough syndrome [Not Recovered/Not Resolved]
  - Gastrooesophageal reflux disease [Recovering/Resolving]
  - Red cell distribution width increased [Unknown]
  - Nasal congestion [Unknown]
  - Drug ineffective [Unknown]
  - Dyspnoea [Unknown]
  - Lung infection [Unknown]
  - Haematocrit increased [Unknown]

NARRATIVE: CASE EVENT DATE: 201305
